FAERS Safety Report 6723365-4 (Version None)
Quarter: 2010Q2

REPORT INFORMATION
  Report Type: 
  Country: None (occurrence: None)
  Receive Date: 20100511
  Receipt Date: 20100419
  Transmission Date: 20101027
  Serious: Yes (Life-Threatening)
  Sender: FDA-Public Use
  Company Number: DE-SOLVAY-00310002147

PATIENT
  Age: 20 Year
  Sex: Male

DRUGS (2)
  1. FEVARIN (FLUVOXAMINE MALEATE) [Suspect]
     Indication: OBSESSIVE THOUGHTS
     Dosage: 25 MILLIGRAM(S)
     Dates: start: 20071001, end: 20090501
  2. FLUVOXAMINE (GENERIC) (FLUVOXAMINE) [Suspect]
     Indication: OBSESSIVE THOUGHTS
     Dosage: 150 MILLIGRAM(S), DURATION: A FEW MONTHS

REACTIONS (5)
  - ANDROGENS INCREASED [None]
  - BLOOD GLUCOSE DECREASED [None]
  - HIGH DENSITY LIPOPROTEIN DECREASED [None]
  - NARCOLEPSY [None]
  - SEX HORMONE BINDING GLOBULIN DECREASED [None]
